FAERS Safety Report 10944248 (Version 1)
Quarter: 2015Q1

REPORT INFORMATION
  Report Type: Spontaneous
  Country: US (occurrence: US)
  Receive Date: 20150323
  Receipt Date: 20150323
  Transmission Date: 20150721
  Serious: Yes (Other)
  Sender: FDA-Public Use
  Company Number: US-BEH-2013034525

PATIENT
  Age: 57 Year
  Sex: Male

DRUGS (4)
  1. IVIG [Suspect]
     Active Substance: HUMAN IMMUNOGLOBULIN G
     Indication: DEMYELINATING POLYNEUROPATHY
     Route: 042
  2. INFLIXI-MAB [Suspect]
     Active Substance: INFLIXIMAB
     Indication: DEMYELINATING POLYNEUROPATHY
  3. METHYLPREDNISOLONE. [Suspect]
     Active Substance: METHYLPREDNISOLONE
     Indication: DEMYELINATING POLYNEUROPATHY
  4. MONOCLONAL ANTIBODIES [Suspect]
     Active Substance: UNSPECIFIED INGREDIENT
     Indication: MALIGNANT MELANOMA

REACTIONS (2)
  - Drug ineffective for unapproved indication [Recovered/Resolved]
  - Neuropathy peripheral [Recovered/Resolved]
